FAERS Safety Report 11514397 (Version 1)
Quarter: 2015Q3

REPORT INFORMATION
  Report Type: Report from Study
  Country: JP (occurrence: JP)
  Receive Date: 20150916
  Receipt Date: 20150916
  Transmission Date: 20151125
  Serious: Yes (Hospitalization)
  Sender: FDA-Public Use
  Company Number: JP-PFIZER INC-2015309176

PATIENT
  Age: 86 Year
  Sex: Female
  Weight: 55.3 kg

DRUGS (19)
  1. RHEUMATREX [Concomitant]
     Active Substance: METHOTREXATE SODIUM
     Dosage: 4 MG, WEEKLY
     Route: 048
     Dates: end: 20141013
  2. MUCOSTA [Concomitant]
     Active Substance: REBAMIPIDE
     Route: 048
  3. ITOROL [Concomitant]
     Active Substance: ISOSORBIDE MONONITRATE
     Route: 048
  4. MEVALOTIN [Concomitant]
     Active Substance: PRAVASTATIN SODIUM
     Route: 048
  5. RHEUMATREX [Concomitant]
     Active Substance: METHOTREXATE SODIUM
     Dosage: 4 MG, WEEKLY
     Route: 048
     Dates: start: 20141219
  6. SELBEX [Concomitant]
     Active Substance: TEPRENONE
     Route: 048
  7. ARTIST [Concomitant]
     Active Substance: CARVEDILOL
     Route: 048
  8. GASTER [Concomitant]
     Active Substance: FAMOTIDINE
     Route: 048
  9. LEUCOVORIN. [Concomitant]
     Active Substance: LEUCOVORIN
     Route: 048
  10. TOFACITINIB CITRATE [Suspect]
     Active Substance: TOFACITINIB CITRATE
     Indication: RHEUMATOID ARTHRITIS
     Dosage: 5 MG, 1X/DAY
     Route: 048
     Dates: start: 20140808, end: 20141013
  11. ZYLORIC [Concomitant]
     Active Substance: ALLOPURINOL
     Route: 048
  12. METHYCOBAL [Concomitant]
     Active Substance: METHYLCOBALAMIN
     Route: 048
  13. BAYASPIRIN [Concomitant]
     Active Substance: ASPIRIN
     Route: 048
  14. ARGAMATE [Concomitant]
     Active Substance: CALCIUM POLYSTYRENE SULFONATE
     Route: 048
  15. TRAZENTA [Concomitant]
     Active Substance: LINAGLIPTIN
     Dosage: UNK
     Route: 048
     Dates: start: 20140925
  16. MAGLAX [Concomitant]
     Active Substance: MAGNESIUM OXIDE
     Route: 048
  17. SIGMART [Concomitant]
     Active Substance: NICORANDIL
     Route: 048
  18. TANATRIL [Concomitant]
     Active Substance: IMIDAPRIL
     Route: 048
  19. AMARYL [Concomitant]
     Active Substance: GLIMEPIRIDE
     Route: 048

REACTIONS (1)
  - Bile duct stone [Recovering/Resolving]

NARRATIVE: CASE EVENT DATE: 20141013
